FAERS Safety Report 23665760 (Version 2)
Quarter: 2024Q2

REPORT INFORMATION
  Report Type: Report from Study
  Country: CA (occurrence: CA)
  Receive Date: 20240323
  Receipt Date: 20240403
  Transmission Date: 20240715
  Serious: Yes (Other)
  Sender: FDA-Public Use
  Company Number: CA-ABBVIE-5688055

PATIENT
  Age: 43 Year
  Sex: Female

DRUGS (2)
  1. RINVOQ [Suspect]
     Active Substance: UPADACITINIB
     Indication: Colitis ulcerative
     Dosage: 45 MG ONCE DAILY FOR 8 WEEKS, THEN 30 MG ONCE DAILY THEREAFTER?LAST ADMIN DATE: 2024
     Route: 048
     Dates: start: 20240228
  2. RINVOQ [Suspect]
     Active Substance: UPADACITINIB
     Indication: Colitis ulcerative
     Dosage: FORM STRENGTH: 30 MILLIGRAM
     Route: 048

REACTIONS (6)
  - Dental implantation [Not Recovered/Not Resolved]
  - Headache [Recovered/Resolved]
  - Complication associated with device [Not Recovered/Not Resolved]
  - Illness [Unknown]
  - Nasopharyngitis [Unknown]
  - Hypertension [Unknown]

NARRATIVE: CASE EVENT DATE: 20240101
